FAERS Safety Report 5200234-2 (Version None)
Quarter: 2007Q1

REPORT INFORMATION
  Report Type: 
  Country: None (occurrence: None)
  Receive Date: 20070105
  Receipt Date: 20061227
  Transmission Date: 20070707
  Serious: Yes (Other)
  Sender: FDA-Public Use
  Company Number: BR-PFIZER INC-2004225369BR

PATIENT
  Sex: Female

DRUGS (4)
  1. FRONTAL [Suspect]
     Indication: ANXIETY
     Route: 048
  2. FRONTAL [Suspect]
     Indication: PANIC DISORDER
  3. FLUOXETINE [Concomitant]
     Route: 048
  4. ANAFRANIL [Concomitant]

REACTIONS (15)
  - AMENORRHOEA [None]
  - ANXIETY [None]
  - ASTHENIA [None]
  - BLOOD PRESSURE INCREASED [None]
  - BONE PAIN [None]
  - COLD SWEAT [None]
  - CRYING [None]
  - FORMICATION [None]
  - HYPOAESTHESIA [None]
  - IRRITABILITY [None]
  - PERIPHERAL COLDNESS [None]
  - SOMNOLENCE [None]
  - SPEECH DISORDER [None]
  - TACHYCARDIA [None]
  - TREMOR [None]
